FAERS Safety Report 4955540-3 (Version None)
Quarter: 2006Q1

REPORT INFORMATION
  Report Type: 
  Country: None (occurrence: None)
  Receive Date: 20060328
  Receipt Date: 20060324
  Transmission Date: 20060701
  Serious: Yes (Other)
  Sender: FDA-Public Use
  Company Number: US-GLAXOSMITHKLINE-A0598912A

PATIENT
  Age: 54 Year
  Sex: Male

DRUGS (3)
  1. GOODY'S EXTRA STRENGTH HEADACHE POWDER [Suspect]
     Indication: ARTHRITIS
  2. ALCOHOL [Concomitant]
  3. ACID REFLUX MED. [Concomitant]

REACTIONS (3)
  - DEPENDENCE [None]
  - MALAISE [None]
  - PANIC REACTION [None]
